FAERS Safety Report 11244001 (Version 2)
Quarter: 2015Q3

REPORT INFORMATION
  Report Type: Spontaneous
  Country: FR (occurrence: FR)
  Receive Date: 20150707
  Receipt Date: 20150713
  Transmission Date: 20151125
  Serious: Yes (Hospitalization)
  Sender: FDA-Public Use
  Company Number: FR-PFIZER INC-2015221953

PATIENT
  Age: 61 Year
  Sex: Female

DRUGS (10)
  1. NOCTAMIDE [Concomitant]
     Active Substance: LORMETAZEPAM
  2. XANAX [Concomitant]
     Active Substance: ALPRAZOLAM
  3. SOLU-MEDROL [Suspect]
     Active Substance: METHYLPREDNISOLONE SODIUM SUCCINATE
     Indication: CHRONIC OBSTRUCTIVE PULMONARY DISEASE
     Dosage: 1 DF, 1X/DAY
     Route: 030
     Dates: start: 20150119, end: 20150127
  4. ROCEPHINE [Concomitant]
     Active Substance: CEFTRIAXONE SODIUM
     Indication: CHRONIC OBSTRUCTIVE PULMONARY DISEASE
     Dosage: 1 DF, 1X/DAY
     Route: 058
     Dates: start: 20150119, end: 20150127
  5. VALDOXAN [Concomitant]
     Active Substance: AGOMELATINE
  6. ABILIFY [Concomitant]
     Active Substance: ARIPIPRAZOLE
  7. TERCIAN [Concomitant]
     Active Substance: CYAMEMAZINE
  8. GLUCOPHAGE [Concomitant]
     Active Substance: METFORMIN HYDROCHLORIDE
  9. JANUMET [Concomitant]
     Active Substance: METFORMIN HYDROCHLORIDE\SITAGLIPTIN PHOSPHATE
  10. CYMBALTA [Concomitant]
     Active Substance: DULOXETINE HYDROCHLORIDE

REACTIONS (1)
  - Diabetes mellitus inadequate control [Unknown]

NARRATIVE: CASE EVENT DATE: 20150128
